FAERS Safety Report 7623927-6 (Version None)
Quarter: 2011Q3

REPORT INFORMATION
  Report Type: 
  Country: None (occurrence: None)
  Receive Date: 20110720
  Receipt Date: 20110705
  Transmission Date: 20111222
  Serious: Yes (Hospitalization)
  Sender: FDA-Public Use
  Company Number: BE-JNJFOC-20110706946

PATIENT
  Age: 57 Year
  Sex: Male

DRUGS (2)
  1. CIRRUS [Suspect]
     Route: 048
     Dates: start: 20110702
  2. CIRRUS [Suspect]
     Indication: PRODUCT USED FOR UNKNOWN INDICATION
     Route: 048
     Dates: start: 20110630, end: 20110630

REACTIONS (1)
  - MALAISE [None]
